FAERS Safety Report 9936519 (Version 1)
Quarter: 2014Q1

REPORT INFORMATION
  Report Type: Spontaneous
  Country: US (occurrence: US)
  Receive Date: 20140228
  Receipt Date: 20140228
  Transmission Date: 20141002
  Serious: No
  Sender: FDA-Public Use
  Company Number: US-AMGEN-USASP2014006043

PATIENT
  Age: 45 Year
  Sex: Female
  Weight: 62.59 kg

DRUGS (4)
  1. ENBREL [Suspect]
     Indication: PRODUCT USED FOR UNKNOWN INDICATION
     Dosage: 50 MG, QWK
     Route: 058
     Dates: end: 201311
  2. FOLIC ACID [Concomitant]
     Dosage: UNK
  3. LEUCOVORIN CA [Concomitant]
     Dosage: 15 MG, UNK
  4. METHOTREXATE [Concomitant]
     Dosage: 2.5 MG, UNK

REACTIONS (2)
  - Tooth disorder [Unknown]
  - Tooth infection [Unknown]
